FAERS Safety Report 10985775 (Version 1)
Quarter: 2015Q2

REPORT INFORMATION
  Report Type: Spontaneous
  Country: US (occurrence: None)
  Receive Date: 20150403
  Receipt Date: 20150403
  Transmission Date: 20150821
  Serious: No
  Sender: FDA-Public Use
  Company Number: None

PATIENT
  Age: 65 Year
  Sex: Male
  Weight: 139.2 kg

DRUGS (2)
  1. MORPHINE [Suspect]
     Active Substance: MORPHINE
     Indication: PAIN
     Route: 048
     Dates: start: 20150129, end: 20150208
  2. MORPHINE [Suspect]
     Active Substance: MORPHINE
     Route: 048

REACTIONS (1)
  - Oropharyngeal candidiasis [None]

NARRATIVE: CASE EVENT DATE: 20150208
